FAERS Safety Report 7441673-9 (Version None)
Quarter: 2011Q2

REPORT INFORMATION
  Report Type: 
  Country: None (occurrence: None)
  Receive Date: 20110428
  Receipt Date: 20110302
  Transmission Date: 20111010
  Serious: No
  Sender: FDA-Public Use
  Company Number: US-KINGPHARMUSA00001-K201100232

PATIENT

DRUGS (1)
  1. BICILLIN C-R 900/300 [Suspect]
     Indication: CHOREA
     Dosage: UNK
     Route: 030

REACTIONS (2)
  - WRONG DRUG ADMINISTERED [None]
  - NO ADVERSE EVENT [None]
